FAERS Safety Report 19803286 (Version 5)
Quarter: 2021Q4

REPORT INFORMATION
  Report Type: Report from Study
  Country: AU (occurrence: AU)
  Receive Date: 20210908
  Receipt Date: 20211014
  Transmission Date: 20220304
  Serious: Yes (Other)
  Sender: FDA-Public Use
  Company Number: AU-ROCHE-2901900

PATIENT
  Age: 72 Year
  Sex: Male
  Weight: 86.1 kg

DRUGS (24)
  1. RITUXIMAB [Suspect]
     Active Substance: RITUXIMAB
     Indication: Chronic lymphocytic leukaemia
     Dosage: DOSE LAST STUDY DRUG ADMIN PRIOR AE: 1100 MG?START DATE OF MOST RECENT DOSE OF STUDY DRUG?PRIOR TO A
     Route: 041
     Dates: start: 20210504
  2. BENDAMUSTINE [Suspect]
     Active Substance: BENDAMUSTINE
     Indication: Chronic lymphocytic leukaemia
     Dosage: ON 2 CONSECUTIVE DAYS OF CYCLES 1-6.?DOSE LAST STUDY DRUG ADMIN PRIOR AE: 185 MG?START DATE OF MOST
     Route: 042
     Dates: start: 20210504
  3. ACETAMINOPHEN [Concomitant]
     Active Substance: ACETAMINOPHEN
     Indication: Headache
     Route: 048
     Dates: start: 20210504
  4. ACETAMINOPHEN [Concomitant]
     Active Substance: ACETAMINOPHEN
     Indication: Premedication
     Route: 048
     Dates: start: 20210824, end: 20210824
  5. ACETAMINOPHEN [Concomitant]
     Active Substance: ACETAMINOPHEN
     Route: 048
     Dates: start: 20210727, end: 20210727
  6. ACETAMINOPHEN [Concomitant]
     Active Substance: ACETAMINOPHEN
     Route: 048
     Dates: start: 20210921, end: 20210921
  7. CEPHALEXIN [Concomitant]
     Active Substance: CEPHALEXIN
     Route: 048
     Dates: start: 20210817
  8. LORATADINE [Concomitant]
     Active Substance: LORATADINE
     Indication: Premedication
     Route: 048
     Dates: start: 20210727, end: 20210727
  9. LORATADINE [Concomitant]
     Active Substance: LORATADINE
     Route: 048
     Dates: start: 20210824, end: 20210824
  10. LORATADINE [Concomitant]
     Active Substance: LORATADINE
     Route: 048
     Dates: start: 20210921, end: 20210921
  11. HYDROCORTISONE [Concomitant]
     Active Substance: HYDROCORTISONE
     Route: 042
     Dates: start: 20210727, end: 20210727
  12. HYDROCORTISONE [Concomitant]
     Active Substance: HYDROCORTISONE
     Route: 042
     Dates: start: 20210824, end: 20210824
  13. HYDROCORTISONE [Concomitant]
     Active Substance: HYDROCORTISONE
     Route: 042
     Dates: start: 20210921, end: 20210921
  14. PALONOSETRON. [Concomitant]
     Active Substance: PALONOSETRON HYDROCHLORIDE
     Route: 042
     Dates: start: 20210727, end: 20210727
  15. PALONOSETRON. [Concomitant]
     Active Substance: PALONOSETRON HYDROCHLORIDE
     Route: 042
     Dates: start: 20210824, end: 20210824
  16. PALONOSETRON. [Concomitant]
     Active Substance: PALONOSETRON HYDROCHLORIDE
     Route: 042
     Dates: start: 20210921, end: 20210921
  17. PNEUMOCOCCAL VACCINE POLYVALENT NOS [Concomitant]
     Active Substance: PNEUMOCOCCAL VACCINE POLYVALENT
     Dates: start: 20210210
  18. INFLUENZA VIRUS VACCINE [Concomitant]
     Active Substance: INFLUENZA VIRUS VACCINE
     Dates: start: 20200427
  19. VARICELLA-ZOSTER VIRUS STRAIN OKA/MERCK LIVE ANTIGEN [Concomitant]
     Active Substance: VARICELLA-ZOSTER VIRUS STRAIN OKA/MERCK LIVE ANTIGEN
     Dates: start: 20190325
  20. TETANUS TOXOID ADSORBED (VACCINE) [Concomitant]
     Active Substance: CLOSTRIDIUM TETANI TOXOID ANTIGEN (FORMALDEHYDE INACTIVATED)
     Dates: start: 20110326
  21. DIPHTHERIA TOXOID NOS [Concomitant]
     Active Substance: CORYNEBACTERIUM DIPHTHERIAE TOXOID ANTIGEN (FORMALDEHYDE INACTIVATED)
     Dates: start: 20110326
  22. RUBELLA VIRUS VACCINE LIVE NOS [Concomitant]
     Active Substance: RUBELLA VIRUS STRAIN WISTAR RA 27/3 LIVE ANTIGEN
     Dates: start: 20100916
  23. ENOXAPARIN [Concomitant]
     Active Substance: ENOXAPARIN
     Indication: Superficial vein thrombosis
     Route: 058
     Dates: start: 20210927
  24. APIXABAN [Concomitant]
     Active Substance: APIXABAN
     Route: 048
     Dates: start: 20211004

REACTIONS (1)
  - Malignant melanoma [Recovering/Resolving]

NARRATIVE: CASE EVENT DATE: 20210817
